FAERS Safety Report 8673891 (Version 5)
Quarter: 2012Q4

REPORT INFORMATION
  Report Type: Report from Study
  Country: DE (occurrence: DE)
  Receive Date: 20120719
  Receipt Date: 20121204
  Transmission Date: 20130627
  Serious: Yes (Hospitalization)
  Sender: FDA-Public Use
  Company Number: DE-UCBSA-055108

PATIENT
  Sex: Female
  Weight: 108 kg

DRUGS (7)
  1. CERTOLIZUMAB PEGOL [Suspect]
     Indication: RHEUMATOID ARTHRITIS
     Dosage: NO OF DOSES RECEIVED:19
     Route: 058
     Dates: start: 20110629, end: 20120712
  2. CARBIMAZOLE [Concomitant]
     Indication: HYPERTHYROIDISM
     Dosage: DOSE: 20 MG
     Dates: end: 200707
  3. MTX [Concomitant]
     Indication: RHEUMATOID ARTHRITIS
     Route: 048
     Dates: start: 1996
  4. IBUFLAM [Concomitant]
     Indication: RHEUMATOID ARTHRITIS
     Route: 048
  5. FENOFIBRATE [Concomitant]
     Indication: LIPID METABOLISM DISORDER
     Dates: end: 201107
  6. MICARDIS [Concomitant]
     Indication: HYPERTENSION
     Dosage: DOSE:80 MG
  7. MICARDIS PLUS [Concomitant]
     Indication: HYPERTENSION
     Dosage: 80/12.5 MG

REACTIONS (2)
  - Toxic nodular goitre [Unknown]
  - Vocal cord cyst [Recovered/Resolved]
